FAERS Safety Report 9860867 (Version 1)
Quarter: 2014Q1

REPORT INFORMATION
  Report Type: Spontaneous
  Country: CA (occurrence: CA)
  Receive Date: 20140202
  Receipt Date: 20140202
  Transmission Date: 20141002
  Serious: No
  Sender: FDA-Public Use
  Company Number: CA-ALLERGAN-1302031US

PATIENT
  Sex: Female

DRUGS (3)
  1. BOTOX [Suspect]
     Indication: HYPERHIDROSIS
     Dosage: UNK UNITS, UNK
     Dates: start: 200403, end: 200403
  2. BOTOX [Suspect]
     Indication: HYPERHIDROSIS
     Dosage: UNK
     Dates: start: 200405, end: 200405
  3. BOTOX [Suspect]
     Dosage: UNK
     Dates: start: 2009, end: 2009

REACTIONS (6)
  - Dizziness [Recovered/Resolved]
  - Hyperhidrosis [Unknown]
  - Exposure during breast feeding [Unknown]
  - Off label use [Unknown]
  - Vertigo [Recovered/Resolved]
  - Therapeutic response decreased [Unknown]
